FAERS Safety Report 24863110 (Version 1)
Quarter: 2025Q1

REPORT INFORMATION
  Report Type: Report from Study
  Country: US (occurrence: US)
  Receive Date: 20250120
  Receipt Date: 20250120
  Transmission Date: 20250408
  Serious: Yes (Hospitalization)
  Sender: JAZZ
  Company Number: US-JAZZ PHARMACEUTICALS-2025-US-001378

PATIENT
  Sex: Female

DRUGS (9)
  1. XYWAV [Suspect]
     Active Substance: CALCIUM OXYBATE\MAGNESIUM OXYBATE\POTASSIUM OXYBATE\SODIUM OXYBATE
     Indication: Narcolepsy
  2. XYWAV [Suspect]
     Active Substance: CALCIUM OXYBATE\MAGNESIUM OXYBATE\POTASSIUM OXYBATE\SODIUM OXYBATE
     Indication: Cataplexy
  3. XYWAV [Suspect]
     Active Substance: CALCIUM OXYBATE\MAGNESIUM OXYBATE\POTASSIUM OXYBATE\SODIUM OXYBATE
     Indication: Somnolence
  4. PREGABALIN [Concomitant]
     Active Substance: PREGABALIN
     Indication: Product used for unknown indication
     Dates: start: 20211106
  5. VERAPAMIL [Concomitant]
     Active Substance: VERAPAMIL HYDROCHLORIDE
     Indication: Product used for unknown indication
     Dates: start: 20230806
  6. DESVENLAFAXINE SUCCINATE [Concomitant]
     Active Substance: DESVENLAFAXINE SUCCINATE
     Indication: Product used for unknown indication
     Dates: start: 20230806
  7. ABILIFY [Concomitant]
     Active Substance: ARIPIPRAZOLE
     Indication: Product used for unknown indication
     Dates: start: 20230706
  8. ROPINIROLE HYDROCHLORIDE [Concomitant]
     Active Substance: ROPINIROLE HYDROCHLORIDE
     Indication: Product used for unknown indication
     Dates: start: 20211106
  9. OMEPRAZOLE DELAYED RELEASE [OMEPRAZOLE] [Concomitant]
     Indication: Product used for unknown indication
     Dates: start: 20240227

REACTIONS (1)
  - Hospitalisation [Unknown]
